FAERS Safety Report 4842827-8 (Version None)
Quarter: 2005Q4

REPORT INFORMATION
  Report Type: 
  Country: None (occurrence: None)
  Receive Date: 20051130
  Receipt Date: 20051121
  Transmission Date: 20060501
  Serious: Yes (Other)
  Sender: FDA-Public Use
  Company Number: 2005158230

PATIENT
  Sex: Female

DRUGS (3)
  1. DOSTINEX [Suspect]
     Indication: ILL-DEFINED DISORDER
  2. MAGNESIUM (MAGNESIUM) [Concomitant]
  3. VITAFERRO (ASCORBIC ACID, FERROUS SULFATE) [Concomitant]

REACTIONS (4)
  - CAESAREAN SECTION [None]
  - DRUG EXPOSURE DURING PREGNANCY [None]
  - FUNGAL INFECTION [None]
  - PREMATURE SEPARATION OF PLACENTA [None]
